FAERS Safety Report 6312274-0 (Version None)
Quarter: 2009Q3

REPORT INFORMATION
  Report Type: 
  Country: None (occurrence: None)
  Receive Date: 20090813
  Receipt Date: 20090805
  Transmission Date: 20100115
  Serious: Yes (Life-Threatening, Hospitalization, Disabling)
  Sender: FDA-Public Use
  Company Number: 2009SP017867

PATIENT
  Age: 52 Year
  Sex: Male

DRUGS (3)
  1. DIPROPHOS (BETAMETHASONE SODIUM PHOSPHATE/DIPROPIONATE) (BETAMETHASONE [Suspect]
     Indication: INTERVERTEBRAL DISC DISORDER
     Dosage: 1 ML; ONCE; IA
     Route: 014
     Dates: start: 20090716, end: 20090716
  2. DIPROPHOS (BETAMETHASONE SODIUM PHOSPHATE/DIPROPIONATE) (BETAMETHASONE [Suspect]
     Indication: RADICULOPATHY
     Dosage: 1 ML; ONCE; IA
     Route: 014
     Dates: start: 20090716, end: 20090716
  3. STREULI [LIDOCAINE] [Concomitant]

REACTIONS (12)
  - ANGIOPATHY [None]
  - ATAXIA [None]
  - DECREASED VIBRATORY SENSE [None]
  - HEADACHE [None]
  - HYPOTENSION [None]
  - IVTH NERVE PARALYSIS [None]
  - MALAISE [None]
  - NAUSEA [None]
  - NERVOUS SYSTEM DISORDER [None]
  - QUADRIPLEGIA [None]
  - SOMNOLENCE [None]
  - VERTIGO [None]
